FAERS Safety Report 14368837 (Version 4)
Quarter: 2019Q2

REPORT INFORMATION
  Report Type: Spontaneous
  Country: US (occurrence: US)
  Receive Date: 20180109
  Receipt Date: 20190523
  Transmission Date: 20190711
  Serious: No
  Sender: FDA-Public Use
  Company Number: US-PFIZER INC-2017553299

PATIENT
  Age: 67 Year
  Sex: Female
  Weight: 68 kg

DRUGS (15)
  1. XELJANZ XR [Suspect]
     Active Substance: TOFACITINIB CITRATE
     Indication: SCLERITIS
     Dosage: 11 MG, DAILY
     Route: 048
     Dates: start: 2017, end: 201712
  2. PRAMIPEXOLE. [Concomitant]
     Active Substance: PRAMIPEXOLE
     Indication: RESTLESS LEGS SYNDROME
     Dosage: UNK, 1X/DAY (2-3 DF AT BEDTIME)
     Dates: start: 2014
  3. BUPROPION. [Concomitant]
     Active Substance: BUPROPION
     Indication: ANXIETY
     Dosage: 150 MG, 2X/DAY
  4. BISOPROLOL FUMARATE. [Concomitant]
     Active Substance: BISOPROLOL FUMARATE
     Indication: CEREBROVASCULAR ACCIDENT
     Dosage: 5 MG, DAILY
     Dates: start: 2017
  5. XELJANZ XR [Suspect]
     Active Substance: TOFACITINIB CITRATE
     Indication: POLYMYALGIA RHEUMATICA
     Dosage: 11 MG, 1X/DAY
     Route: 048
     Dates: end: 20171207
  6. METHOTREXATE. [Concomitant]
     Active Substance: METHOTREXATE
     Indication: ARTHRITIS
     Dosage: UNK
     Dates: end: 2016
  7. XELJANZ XR [Suspect]
     Active Substance: TOFACITINIB CITRATE
     Indication: RHEUMATOID ARTHRITIS
  8. XELJANZ XR [Suspect]
     Active Substance: TOFACITINIB CITRATE
     Indication: OSTEOARTHRITIS
  9. METHOTREXATE. [Concomitant]
     Active Substance: METHOTREXATE
     Dosage: UNK (0.6 OF WHATEVER IS IN THE NEEDLE)
     Dates: end: 201711
  10. LOSARTAN/HCTZ [Concomitant]
     Active Substance: HYDROCHLOROTHIAZIDE\LOSARTAN
     Indication: BLOOD PRESSURE ABNORMAL
     Dosage: UNK [LOSARTAN: 100 MG]/[HCTZ: 25 MG]
  11. CARISOPRODOL. [Concomitant]
     Active Substance: CARISOPRODOL
     Indication: MUSCLE RELAXANT THERAPY
     Dosage: 350 MG, UNK (UP TO 3 DAILY)
     Dates: start: 2011, end: 2017
  12. XELJANZ XR [Suspect]
     Active Substance: TOFACITINIB CITRATE
     Indication: BLINDNESS
     Dosage: 11 MG, 1X/DAY
     Dates: start: 2017, end: 20190415
  13. LEVOTHYROXINE. [Concomitant]
     Active Substance: LEVOTHYROXINE
     Indication: THYROIDECTOMY
     Dosage: 88 UG, UNK
     Dates: start: 2015
  14. ALLOPURINOL. [Concomitant]
     Active Substance: ALLOPURINOL
     Indication: GOUT
     Dosage: 200 MG, DAILY
     Dates: start: 2017
  15. DULOXETINE. [Concomitant]
     Active Substance: DULOXETINE
     Indication: ANXIETY
     Dosage: 60 MG, 1X/DAY

REACTIONS (3)
  - Weight increased [Not Recovered/Not Resolved]
  - Alopecia [Unknown]
  - Gait disturbance [Not Recovered/Not Resolved]

NARRATIVE: CASE EVENT DATE: 2018
